FAERS Safety Report 22534352 (Version 1)
Quarter: 2023Q2

REPORT INFORMATION
  Report Type: Spontaneous
  Country: IT (occurrence: IT)
  Receive Date: 20230608
  Receipt Date: 20230608
  Transmission Date: 20230722
  Serious: Yes (Other)
  Sender: FDA-Public Use
  Company Number: None

PATIENT
  Age: 57 Year
  Sex: Male

DRUGS (2)
  1. AMOXICILLIN [Suspect]
     Active Substance: AMOXICILLIN
     Indication: Orthopaedic procedure
     Route: 065
     Dates: start: 20230505
  2. EPARINA [Concomitant]
     Indication: Orthopaedic procedure
     Route: 065

REACTIONS (3)
  - Pruritus [Recovering/Resolving]
  - Skin reaction [Recovering/Resolving]
  - Localised oedema [Recovering/Resolving]

NARRATIVE: CASE EVENT DATE: 20230505
